FAERS Safety Report 9520035 (Version 2)
Quarter: 2014Q1

REPORT INFORMATION
  Report Type: Spontaneous
  Country: US (occurrence: None)
  Receive Date: 20130305
  Receipt Date: 20140306
  Transmission Date: 20141002
  Serious: Yes (Other)
  Sender: FDA-Public Use
  Company Number: 163-21880-12083023

PATIENT
  Age: 83 Year
  Sex: Male
  Weight: 60.8 kg

DRUGS (3)
  1. REVLIMID [Suspect]
     Indication: PLASMA CELL MYELOMA
     Dosage: 5 MG, 21 IN 28 DAYS
     Route: 048
     Dates: start: 20120118
  2. CYMBALTA [Concomitant]
  3. GABAPENTIN (GABAPENTIN)UNKNOWN [Concomitant]

REACTIONS (6)
  - Bone pain [None]
  - Hepatic enzyme increased [None]
  - Fatigue [None]
  - Pruritus [None]
  - Incorrect dose administered [None]
  - Diarrhoea [None]
